FAERS Safety Report 17434486 (Version 1)
Quarter: 2020Q1

REPORT INFORMATION
  Report Type: Spontaneous
  Country: US (occurrence: US)
  Receive Date: 20200219
  Receipt Date: 20200219
  Transmission Date: 20200409
  Serious: No
  Sender: FDA-Public Use
  Company Number: US-PFIZER INC-2020074123

PATIENT
  Sex: Female

DRUGS (1)
  1. ESTRADIOL CIPIONATE [Suspect]
     Active Substance: ESTRADIOL CYPIONATE
     Dosage: 0.5 MG, UNK

REACTIONS (1)
  - Drug ineffective [Unknown]
